FAERS Safety Report 6511501-4 (Version None)
Quarter: 2009Q4

REPORT INFORMATION
  Report Type: 
  Country: None (occurrence: None)
  Receive Date: 20091222
  Receipt Date: 20090414
  Transmission Date: 20100525
  Serious: No
  Sender: FDA-Public Use
  Company Number: US-ASTRAZENECA-2009UW09321

PATIENT
  Sex: Female

DRUGS (2)
  1. CRESTOR [Suspect]
     Dosage: 5MG CUT IN HALF
     Route: 048
  2. PLAVIX [Concomitant]

REACTIONS (2)
  - CHEST PAIN [None]
  - PRURITUS [None]
